FAERS Safety Report 5724695-5 (Version None)
Quarter: 2008Q2

REPORT INFORMATION
  Report Type: 
  Country: None (occurrence: None)
  Receive Date: 20080430
  Receipt Date: 20080430
  Transmission Date: 20081010
  Serious: Yes (Other)
  Sender: FDA-Public Use
  Company Number: None

PATIENT
  Sex: Male
  Weight: 113.3993 kg

DRUGS (1)
  1. NEXIUM [Suspect]
     Indication: ULCER
     Dosage: 1 CAPSULE PER DAY PO
     Route: 048
     Dates: start: 20071014, end: 20080427

REACTIONS (4)
  - NAUSEA [None]
  - PHARMACEUTICAL PRODUCT COMPLAINT [None]
  - PHARYNGEAL OEDEMA [None]
  - RASH GENERALISED [None]
